FAERS Safety Report 6549084-5 (Version None)
Quarter: 2010Q1

REPORT INFORMATION
  Report Type: 
  Country: None (occurrence: None)
  Receive Date: 20100125
  Receipt Date: 20100120
  Transmission Date: 20100710
  Serious: No
  Sender: FDA-Public Use
  Company Number: IE-ROCHE-678301

PATIENT
  Sex: Female
  Weight: 2.3 kg

DRUGS (1)
  1. TAMIFLU [Suspect]
     Route: 064
     Dates: start: 20091123, end: 20091124

REACTIONS (2)
  - NO ADVERSE EVENT [None]
  - NORMAL NEWBORN [None]
